FAERS Safety Report 8219523-2 (Version None)
Quarter: 2012Q1

REPORT INFORMATION
  Report Type: 
  Country: None (occurrence: None)
  Receive Date: 20120319
  Receipt Date: 20120315
  Transmission Date: 20120608
  Serious: Yes (Other)
  Sender: FDA-Public Use
  Company Number: PHHY2012PT022731

PATIENT
  Sex: Female

DRUGS (6)
  1. AMILORIDE HYDROCHLORIDE [Concomitant]
     Indication: HYPERTENSION
     Dosage: 1 DF, PER DAY
  2. HYDROCHLOROTHIAZIDE [Concomitant]
     Indication: HYPERTENSION
     Dosage: 1 DF, PER DAY
  3. AMLODIPINE/VALSARTAN [Suspect]
     Indication: HYPERTENSION
     Dosage: 1 DF (80 MG VAL/5 MG AMLO), DAILY
     Dates: start: 20120210
  4. DIAZEPAM [Concomitant]
     Indication: ANXIETY
     Dosage: 5 MG, PER DAY
  5. ETHYL LOFLAZEPATE [Concomitant]
     Indication: ANXIETY
     Dosage: 2 MG, S.O.S.
  6. INDAPAMIDE [Suspect]
     Indication: HYPERTENSION
     Dosage: 1 DF, DAILY
     Dates: start: 20120210

REACTIONS (2)
  - GINGIVAL OEDEMA [None]
  - TONGUE OEDEMA [None]
